FAERS Safety Report 8577797-2 (Version None)
Quarter: 2012Q3

REPORT INFORMATION
  Report Type: 
  Country: None (occurrence: None)
  Receive Date: 20120808
  Receipt Date: 20120731
  Transmission Date: 20120928
  Serious: No
  Sender: FDA-Public Use
  Company Number: US-BIOGENIDEC-2012BI006106

PATIENT
  Sex: Female

DRUGS (5)
  1. AVONEX [Concomitant]
     Indication: MULTIPLE SCLEROSIS
     Route: 030
     Dates: start: 19960106, end: 20110921
  2. AVONEX [Concomitant]
     Route: 030
     Dates: start: 20120417
  3. TYLENOL [Concomitant]
     Indication: INFLUENZA LIKE ILLNESS
  4. NEURONTIN [Concomitant]
  5. TYSABRI [Suspect]
     Indication: MULTIPLE SCLEROSIS
     Route: 042
     Dates: start: 20111103, end: 20120321

REACTIONS (10)
  - HYPOAESTHESIA [None]
  - SENSATION OF HEAVINESS [None]
  - DYSSTASIA [None]
  - ADVERSE EVENT [None]
  - MUSCULOSKELETAL DISORDER [None]
  - MUSCULOSKELETAL STIFFNESS [None]
  - SENSORY DISTURBANCE [None]
  - BALANCE DISORDER [None]
  - DISCOMFORT [None]
  - PERIPHERAL COLDNESS [None]
